FAERS Safety Report 6641525-8 (Version None)
Quarter: 2010Q1

REPORT INFORMATION
  Report Type: 
  Country: None (occurrence: None)
  Receive Date: 20100317
  Receipt Date: 20100317
  Transmission Date: 20100710
  Serious: Yes (Other)
  Sender: FDA-Public Use
  Company Number: None

PATIENT
  Age: 39 Year
  Sex: Female

DRUGS (1)
  1. LOVAZA [Suspect]
     Indication: BLOOD CHOLESTEROL ABNORMAL
     Dosage: 3600 MG LOVAZA ONCE A DAY

REACTIONS (3)
  - DRUG DOSE OMISSION [None]
  - MENORRHAGIA [None]
  - VAGINAL HAEMORRHAGE [None]
